FAERS Safety Report 4730030-1 (Version None)
Quarter: 2005Q3

REPORT INFORMATION
  Report Type: 
  Country: None (occurrence: None)
  Receive Date: 20050801
  Receipt Date: 20050721
  Transmission Date: 20060218
  Serious: Yes (Hospitalization)
  Sender: FDA-Public Use
  Company Number: PHBS2005US10524

PATIENT
  Age: 55 Year
  Sex: Female

DRUGS (8)
  1. OCTREOTIDE ACETATE [Suspect]
     Indication: VARICES OESOPHAGEAL
     Dosage: 100 UG
     Route: 040
  2. OCTREOTIDE ACETATE [Suspect]
     Dosage: 50 UG/H
     Route: 041
  3. MORPHINE SULFATE [Concomitant]
  4. PANTOPRAZOLE [Concomitant]
  5. MAGNESIUM SULFATE [Concomitant]
  6. CALCIUM GLUCONATE [Concomitant]
  7. NICOTINE [Concomitant]
  8. ANTIDEPRESSANTS [Concomitant]

REACTIONS (7)
  - ARTERIAL THROMBOSIS [None]
  - COLONIC POLYP [None]
  - DISEASE RECURRENCE [None]
  - GASTRIC VARICES [None]
  - PANCREATITIS [None]
  - SPLENIC INFARCTION [None]
  - VASCULAR PSEUDOANEURYSM [None]
